FAERS Safety Report 17346312 (Version 1)
Quarter: 2020Q1

REPORT INFORMATION
  Report Type: Spontaneous
  Country: BR (occurrence: BR)
  Receive Date: 20200129
  Receipt Date: 20200129
  Transmission Date: 20200409
  Serious: No
  Sender: FDA-Public Use
  Company Number: BR-EXELIXIS-CABO-19021577

PATIENT
  Age: 39 Year
  Sex: Female

DRUGS (4)
  1. ANASTROLIBBS [Concomitant]
  2. ZOLADEX [Concomitant]
     Active Substance: GOSERELIN ACETATE
  3. CABOMETYX [Suspect]
     Active Substance: CABOZANTINIB S-MALATE
     Indication: HEPATOCELLULAR CARCINOMA
     Dosage: 60 MG, QD
     Route: 048
     Dates: start: 20190411, end: 2019
  4. CABOMETYX [Suspect]
     Active Substance: CABOZANTINIB S-MALATE
     Dosage: 60 MG, UNK
     Route: 048
     Dates: start: 2019

REACTIONS (5)
  - Fatigue [Unknown]
  - Hair colour changes [Unknown]
  - Diarrhoea [Unknown]
  - Taste disorder [Unknown]
  - Pain in extremity [Unknown]

NARRATIVE: CASE EVENT DATE: 2019
